FAERS Safety Report 5759531-4 (Version None)
Quarter: 2008Q2

REPORT INFORMATION
  Report Type: 
  Country: None (occurrence: None)
  Receive Date: 20080604
  Receipt Date: 20080604
  Transmission Date: 20081010
  Serious: No
  Sender: FDA-Public Use
  Company Number: None

PATIENT
  Age: 32 Year
  Sex: Male

DRUGS (7)
  1. DILAUDID [Suspect]
     Indication: PAIN
     Dosage: 2 MG Q4 HOURS PRN IV
     Route: 042
     Dates: start: 20080424, end: 20080426
  2. ATIVAN [Concomitant]
  3. OXYCODONE HCL [Concomitant]
  4. ZOFRAN [Concomitant]
  5. CIPRO [Concomitant]
  6. FLAGYL [Concomitant]
  7. BENADRYL [Concomitant]

REACTIONS (1)
  - RASH PRURITIC [None]
